FAERS Safety Report 12369430 (Version 1)
Quarter: 2016Q2

REPORT INFORMATION
  Report Type: Spontaneous
  Country: US (occurrence: None)
  Receive Date: 20160513
  Receipt Date: 20160513
  Transmission Date: 20160815
  Serious: Yes (Other)
  Sender: FDA-Public Use
  Company Number: None

PATIENT
  Age: 72 Year
  Sex: Female

DRUGS (1)
  1. VIBERZI [Suspect]
     Active Substance: ELUXADOLINE
     Indication: DIARRHOEA
     Route: 048
     Dates: start: 20160421

REACTIONS (3)
  - Glossitis [None]
  - Tongue discolouration [None]
  - Tongue discomfort [None]

NARRATIVE: CASE EVENT DATE: 20160421
